FAERS Safety Report 5840926-5 (Version None)
Quarter: 2008Q3

REPORT INFORMATION
  Report Type: 
  Country: None (occurrence: None)
  Receive Date: 20080811
  Receipt Date: 20080730
  Transmission Date: 20090109
  Serious: Yes (Other)
  Sender: FDA-Public Use
  Company Number: US-PFIZER INC-2008064845

PATIENT
  Sex: Male
  Weight: 67.6 kg

DRUGS (10)
  1. CHANTIX [Suspect]
     Indication: SMOKING CESSATION THERAPY
  2. ACETYLSALICYLIC ACID SRT [Concomitant]
  3. PLAVIX [Concomitant]
  4. MAGNESIUM OXIDE [Concomitant]
  5. VERAPAMIL [Concomitant]
  6. LOVASTATIN [Concomitant]
  7. NIASPAN [Concomitant]
  8. ENALAPRIL MALEATE [Concomitant]
  9. VICODIN [Concomitant]
  10. XANAX [Concomitant]

REACTIONS (1)
  - HOMICIDAL IDEATION [None]
